FAERS Safety Report 17586786 (Version 1)
Quarter: 2020Q1

REPORT INFORMATION
  Report Type: Spontaneous
  Country: PL (occurrence: PL)
  Receive Date: 20200326
  Receipt Date: 20200326
  Transmission Date: 20200409
  Serious: Yes (Death)
  Sender: FDA-Public Use
  Company Number: PL-COVIS PHARMA B.V.-2020COV00121

PATIENT
  Age: 54 Year
  Sex: Male

DRUGS (6)
  1. MAGNESIUM  AND POTASSIUM SALTS [Concomitant]
     Route: 065
  2. ZIPRASIDONE. [Suspect]
     Active Substance: ZIPRASIDONE
     Route: 065
  3. PROPAFENONE. [Concomitant]
     Active Substance: PROPAFENONE
     Route: 065
  4. ACENOCOUMAROL [Concomitant]
     Active Substance: ACENOCOUMAROL
     Route: 065
  5. SOTALOL. [Suspect]
     Active Substance: SOTALOL
     Route: 065
  6. DIGOXIN. [Concomitant]
     Active Substance: DIGOXIN
     Route: 065

REACTIONS (2)
  - Drug interaction [Fatal]
  - Ventricular arrhythmia [Fatal]
